FAERS Safety Report 16095981 (Version 1)
Quarter: 2019Q1

REPORT INFORMATION
  Report Type: Spontaneous
  Country: CA (occurrence: CA)
  Receive Date: 20190320
  Receipt Date: 20190320
  Transmission Date: 20190418
  Serious: Yes (Other)
  Sender: FDA-Public Use
  Company Number: CA-ASTRAZENECA-2019SE43334

PATIENT
  Age: 56 Year
  Sex: Female

DRUGS (9)
  1. CITALOPRAM [Suspect]
     Active Substance: CITALOPRAM HYDROBROMIDE
     Dosage: 40 MG, 1X/DAY
     Route: 065
  2. ESOMEPRAZOLE MAGNESIUM. [Suspect]
     Active Substance: ESOMEPRAZOLE MAGNESIUM
     Dosage: 40 MG, 1X/DAY
     Route: 065
  3. ALVESCO [Suspect]
     Active Substance: CICLESONIDE
     Dosage: 2 DF, 1X/DAY
     Route: 055
  4. MONTELUKAST [Suspect]
     Active Substance: MONTELUKAST SODIUM
     Dosage: 10 MG, 1X/DAY
     Route: 065
  5. SALBUTAMOL [Suspect]
     Active Substance: ALBUTEROL
     Dosage: UNK
     Route: 065
  6. VALSARTAN. [Suspect]
     Active Substance: VALSARTAN
     Dosage: 160 MG, 1X/DAY
     Route: 065
  7. ACLIDINIUM BROMIDE. [Suspect]
     Active Substance: ACLIDINIUM BROMIDE
     Dosage: 1 DF, 2X/DAY
     Route: 055
  8. ADVAIR HFA [Suspect]
     Active Substance: FLUTICASONE PROPIONATE\SALMETEROL XINAFOATE
     Dosage: 1 DF, 2X/DAY
     Route: 065
  9. SOLIFENACIN [Suspect]
     Active Substance: SOLIFENACIN
     Dosage: 2.5 MG, 1X/DAY
     Route: 065

REACTIONS (3)
  - Basedow^s disease [Unknown]
  - Hypothyroidism [Unknown]
  - Chronic obstructive pulmonary disease [Unknown]
